FAERS Safety Report 20572577 (Version 1)
Quarter: 2022Q1

REPORT INFORMATION
  Report Type: Spontaneous
  Country: US (occurrence: US)
  Receive Date: 20220309
  Receipt Date: 20220309
  Transmission Date: 20220423
  Serious: Yes (Hospitalization, Other)
  Sender: FDA-Public Use
  Company Number: US-MLMSERVICE-20220224-3396287-1

PATIENT
  Age: 41 Year
  Sex: Male

DRUGS (19)
  1. FENTANYL CITRATE [Suspect]
     Active Substance: FENTANYL CITRATE
     Indication: Respiratory failure
     Dosage: 50000 UG
     Route: 042
  2. FENTANYL CITRATE [Suspect]
     Active Substance: FENTANYL CITRATE
     Indication: Sedation
     Dosage: 665.4 UG
     Dates: start: 20210830
  3. FENTANYL CITRATE [Suspect]
     Active Substance: FENTANYL CITRATE
     Dosage: 3905 UG
     Dates: start: 20210831
  4. FENTANYL CITRATE [Suspect]
     Active Substance: FENTANYL CITRATE
     Dosage: 4306.7 UG
     Dates: start: 20210901
  5. FENTANYL CITRATE [Suspect]
     Active Substance: FENTANYL CITRATE
     Dosage: 4105.9 UG
     Dates: start: 20210902
  6. FENTANYL CITRATE [Suspect]
     Active Substance: FENTANYL CITRATE
     Dosage: 4000.4 UG
     Dates: start: 20210903
  7. FENTANYL CITRATE [Suspect]
     Active Substance: FENTANYL CITRATE
     Dosage: 4062.7 UG
     Dates: start: 20210904
  8. FENTANYL CITRATE [Suspect]
     Active Substance: FENTANYL CITRATE
     Dosage: 3865.6 UG
     Dates: start: 20210905
  9. FENTANYL CITRATE [Suspect]
     Active Substance: FENTANYL CITRATE
     Dosage: 2529.7 UG
     Dates: start: 20210906
  10. FENTANYL CITRATE [Suspect]
     Active Substance: FENTANYL CITRATE
     Dosage: 4382 UG
     Dates: start: 20210907
  11. FENTANYL CITRATE [Suspect]
     Active Substance: FENTANYL CITRATE
     Dosage: 4580.8 UG
     Dates: start: 20210908
  12. FENTANYL CITRATE [Suspect]
     Active Substance: FENTANYL CITRATE
     Dosage: 4396.7 UG
     Dates: start: 20210909
  13. FENTANYL CITRATE [Suspect]
     Active Substance: FENTANYL CITRATE
     Dosage: 4170.7 UG
     Dates: start: 20210910
  14. FENTANYL CITRATE [Suspect]
     Active Substance: FENTANYL CITRATE
     Dosage: 2720.8 UG
     Dates: start: 20210911
  15. FENTANYL CITRATE [Suspect]
     Active Substance: FENTANYL CITRATE
     Dosage: 1197.9 UG
     Dates: start: 20210912
  16. FENTANYL CITRATE [Suspect]
     Active Substance: FENTANYL CITRATE
     Dosage: 240 UG
     Dates: start: 20210913
  17. FENTANYL CITRATE [Suspect]
     Active Substance: FENTANYL CITRATE
     Dosage: 240 UG
     Dates: start: 20210914
  18. FENTANYL CITRATE [Suspect]
     Active Substance: FENTANYL CITRATE
     Dosage: 55.6 UG
     Route: 042
     Dates: start: 20210915
  19. FENTANYL CITRATE [Suspect]
     Active Substance: FENTANYL CITRATE
     Dosage: UNK
     Dates: start: 20210916

REACTIONS (4)
  - Drug withdrawal syndrome [Recovered/Resolved]
  - Agitation [Unknown]
  - Delirium [Unknown]
  - Hypertension [Unknown]
